FAERS Safety Report 7122573-0 (Version None)
Quarter: 2010Q4

REPORT INFORMATION
  Report Type: 
  Country: None (occurrence: None)
  Receive Date: 20101124
  Receipt Date: 20101116
  Transmission Date: 20110411
  Serious: Yes (Hospitalization)
  Sender: FDA-Public Use
  Company Number: US-US-EMD SERONO, INC.-233527J09USA

PATIENT
  Sex: Female

DRUGS (3)
  1. REBIF [Suspect]
     Indication: MULTIPLE SCLEROSIS
     Route: 058
     Dates: start: 20090903, end: 20091015
  2. COPAXONE [Suspect]
     Dates: start: 20090801, end: 20090903
  3. UNSPECIFIED MEDICATIONS [Concomitant]
     Route: 065

REACTIONS (2)
  - GASTROINTESTINAL INFECTION [None]
  - INTESTINAL MASS [None]
